FAERS Safety Report 24634300 (Version 2)
Quarter: 2024Q4

REPORT INFORMATION
  Report Type: Report from Study
  Country: US (occurrence: US)
  Receive Date: 20241119
  Receipt Date: 20241206
  Transmission Date: 20250114
  Serious: Yes (Death, Other)
  Sender: TAKEDA
  Company Number: US-TAKEDA-2023TUS063459

PATIENT
  Sex: Female
  Weight: 52.15 kg

DRUGS (5)
  1. VEDOLIZUMAB [Suspect]
     Active Substance: VEDOLIZUMAB
     Indication: Colitis ulcerative
     Dosage: 300 MILLIGRAM
  2. VITAMIN D [Concomitant]
     Active Substance: VITAMIN D NOS
     Indication: Vitamin D deficiency
     Dosage: 5000 INTERNATIONAL UNIT, QD
  3. VITAMIN B12 [Concomitant]
     Active Substance: CYANOCOBALAMIN
     Indication: Vitamin B12 deficiency
     Dosage: 500 MICROGRAM, QD
  4. FUROSEMIDE [Concomitant]
     Active Substance: FUROSEMIDE
     Indication: Cardiac failure congestive
     Dosage: 20 MILLIGRAM, QD
  5. POTASSIUM [Concomitant]
     Active Substance: POTASSIUM
     Indication: Cardiac failure congestive
     Dosage: 10 MILLIGRAM, QD

REACTIONS (8)
  - Acute respiratory failure [Fatal]
  - Pleural effusion [Fatal]
  - Skin ulcer [Fatal]
  - Septic shock [Fatal]
  - Atrial fibrillation [Unknown]
  - Cardiogenic shock [Unknown]
  - Fall [Unknown]
  - Confusional state [Unknown]
